FAERS Safety Report 23605129 (Version 1)
Quarter: 2024Q1

REPORT INFORMATION
  Report Type: Spontaneous
  Country: US (occurrence: None)
  Receive Date: 20240306
  Receipt Date: 20240306
  Transmission Date: 20240409
  Serious: Yes (unspecified)
  Sender: FDA-Public Use
  Company Number: None

PATIENT
  Age: 33 Month
  Sex: Female
  Weight: 11.34 kg

DRUGS (2)
  1. VIGABATRIN [Suspect]
     Active Substance: VIGABATRIN
     Indication: Infantile spasms
     Dosage: FREQUENCY : TWICE A DAY;?OTHER ROUTE : G-TUBE;?
     Route: 050
     Dates: start: 20230607
  2. CLOBAZAM [Concomitant]
     Active Substance: CLOBAZAM
     Dates: start: 20231215

REACTIONS (1)
  - Visual impairment [None]

NARRATIVE: CASE EVENT DATE: 20240306
